FAERS Safety Report 12338433 (Version 3)
Quarter: 2016Q3

REPORT INFORMATION
  Report Type: Spontaneous
  Country: IL (occurrence: IL)
  Receive Date: 20160505
  Receipt Date: 20160718
  Transmission Date: 20161109
  Serious: Yes (Other)
  Sender: FDA-Public Use
  Company Number: IL-BAYER-2016-083919

PATIENT
  Age: 67 Year
  Sex: Male

DRUGS (1)
  1. XOFIGO [Suspect]
     Active Substance: RADIUM RA-223 DICHLORIDE
     Dosage: 3 TREATMENT CYCLES
     Dates: start: 201602, end: 2016

REACTIONS (5)
  - Metastases to bone [None]
  - Off label use [None]
  - General physical health deterioration [None]
  - Pathological fracture [None]
  - Musculoskeletal chest pain [None]

NARRATIVE: CASE EVENT DATE: 201602
